FAERS Safety Report 6748427-7 (Version None)
Quarter: 2010Q2

REPORT INFORMATION
  Report Type: 
  Country: None (occurrence: None)
  Receive Date: 20100601
  Receipt Date: 20100601
  Transmission Date: 20101027
  Serious: Yes (Hospitalization)
  Sender: FDA-Public Use
  Company Number: None

PATIENT
  Age: 10 Month
  Sex: Female
  Weight: 11.3399 kg

DRUGS (1)
  1. TYLENOL INFANTS DROPS 1.6ML TYLENOL MCNEIL [Suspect]
     Dates: start: 20100401, end: 20100501

REACTIONS (11)
  - ABSCESS [None]
  - BLOOD DISORDER [None]
  - DIARRHOEA [None]
  - MALAISE [None]
  - PAIN [None]
  - PRODUCT QUALITY ISSUE [None]
  - PYREXIA [None]
  - SCREAMING [None]
  - SKIN INFECTION [None]
  - STAPHYLOCOCCAL INFECTION [None]
  - VOMITING [None]
